FAERS Safety Report 7338853-X (Version None)
Quarter: 2011Q1

REPORT INFORMATION
  Report Type: 
  Country: None (occurrence: None)
  Receive Date: 20110303
  Receipt Date: 20110303
  Transmission Date: 20110831
  Serious: Yes (Other)
  Sender: FDA-Public Use
  Company Number: None

PATIENT
  Age: 77 Year
  Sex: Female
  Weight: 74.8435 kg

DRUGS (2)
  1. LEVAQUIN [Suspect]
     Indication: INFECTION
     Dosage: 1 X DAY 500MG JAN. 20, 21, 22, 23.
  2. LEVAQUIN [Suspect]
     Indication: SURGERY
     Dosage: 1 X DAY 500MG JAN. 20, 21, 22, 23.

REACTIONS (7)
  - INSOMNIA [None]
  - VASODILATATION [None]
  - NAUSEA [None]
  - HEADACHE [None]
  - ARTHRALGIA [None]
  - DYSPNOEA [None]
  - MALAISE [None]
